FAERS Safety Report 24740029 (Version 1)
Quarter: 2024Q4

REPORT INFORMATION
  Report Type: Spontaneous
  Country: US (occurrence: US)
  Receive Date: 20241216
  Receipt Date: 20241216
  Transmission Date: 20250114
  Serious: No
  Sender: ITALFARMACO SPA
  Company Number: US-ITALFARMACO SPA-2144425

PATIENT
  Age: 65 Year
  Sex: Female

DRUGS (17)
  1. TIGLUTIK [Suspect]
     Active Substance: RILUZOLE
     Indication: Amyotrophic lateral sclerosis
     Dates: start: 20230215
  2. SCOPOLAMINE N-OXIDE [Suspect]
     Active Substance: SCOPOLAMINE N-OXIDE
  3. VITAMINS [Concomitant]
     Active Substance: VITAMINS
  4. VITAMIN D3 [Concomitant]
     Active Substance: CHOLECALCIFEROL
  5. VITAMIN C [Concomitant]
     Active Substance: ASCORBIC ACID
  6. RADICAVA [Concomitant]
     Active Substance: EDARAVONE
  7. HERBALS\TURMERIC [Concomitant]
     Active Substance: HERBALS\TURMERIC
  8. PROGESTERONE [Concomitant]
     Active Substance: PROGESTERONE
  9. PRIDOPIDINE [Concomitant]
     Active Substance: PRIDOPIDINE
  10. NUEDEXTA [Concomitant]
     Active Substance: DEXTROMETHORPHAN HYDROBROMIDE\QUINIDINE SULFATE
  11. IBUPROFEN [Concomitant]
     Active Substance: IBUPROFEN
  12. MELATONIN [Concomitant]
     Active Substance: MELATONIN
  13. ESTRADIOL [Concomitant]
     Active Substance: ESTRADIOL
  14. PRASTERONE [Concomitant]
     Active Substance: PRASTERONE
  15. VITAMIN B12 [Concomitant]
     Active Substance: CYANOCOBALAMIN
  16. BIOTIN [Concomitant]
     Active Substance: BIOTIN
  17. PROBIOTICS NOS [Concomitant]
     Active Substance: PROBIOTICS NOS

REACTIONS (2)
  - Dizziness [Recovering/Resolving]
  - Fatigue [Recovering/Resolving]
